FAERS Safety Report 11939929 (Version 1)
Quarter: 2016Q1

REPORT INFORMATION
  Report Type: Spontaneous
  Country: SE (occurrence: SE)
  Receive Date: 20160122
  Receipt Date: 20160122
  Transmission Date: 20160526
  Serious: Yes (Hospitalization)
  Sender: FDA-Public Use
  Company Number: SE-TEVA-625942ISR

PATIENT
  Age: 19 Year
  Sex: Female

DRUGS (2)
  1. VALERIANA [Suspect]
     Active Substance: VALERIAN
  2. CITALOPRAM [Suspect]
     Active Substance: CITALOPRAM HYDROBROMIDE

REACTIONS (2)
  - Tachycardia [Unknown]
  - Toxicity to various agents [Unknown]
